FAERS Safety Report 9486932 (Version 3)
Quarter: 2013Q4

REPORT INFORMATION
  Report Type: Report from Study
  Country: US (occurrence: US)
  Receive Date: 20130829
  Receipt Date: 20131009
  Transmission Date: 20140711
  Serious: Yes (Hospitalization, Other)
  Sender: FDA-Public Use
  Company Number: US-US-EMD SERONO, INC.-7214281

PATIENT
  Age: 66 Year
  Sex: Female

DRUGS (3)
  1. REBIF [Suspect]
     Indication: MULTIPLE SCLEROSIS
     Route: 058
     Dates: start: 20130424, end: 201305
  2. REBIF [Suspect]
     Dates: start: 20130524, end: 20130617
  3. ALKA SELTZER PLUS COLD [Concomitant]
     Indication: PREMEDICATION

REACTIONS (10)
  - Intestinal perforation [Unknown]
  - Fall [Recovered/Resolved]
  - Facial bones fracture [Unknown]
  - Intestinal obstruction [Recovered/Resolved]
  - Paralysis [Recovering/Resolving]
  - Dizziness [Not Recovered/Not Resolved]
  - Diarrhoea [Unknown]
  - Gait disturbance [Recovering/Resolving]
  - Pain in extremity [Not Recovered/Not Resolved]
  - Headache [Recovering/Resolving]
